FAERS Safety Report 5485963-8 (Version None)
Quarter: 2007Q4

REPORT INFORMATION
  Report Type: 
  Country: None (occurrence: None)
  Receive Date: 20071012
  Receipt Date: 20070927
  Transmission Date: 20080405
  Serious: Yes (Hospitalization)
  Sender: FDA-Public Use
  Company Number: 2007-02264

PATIENT
  Age: 65 Year
  Sex: Male
  Weight: 69 kg

DRUGS (5)
  1. VELCADE [Suspect]
     Indication: MULTIPLE MYELOMA
     Dosage: 2.30 MG,
     Dates: start: 20070719
  2. DOXORUBICIN HCL [Suspect]
     Indication: MULTIPLE MYELOMA
     Dosage: 16.00 MG, INTRAVENOUS
     Route: 042
     Dates: start: 20070601, end: 20070604
  3. DEXAMETHASONE [Suspect]
     Indication: MULTIPLE MYELOMA
     Dosage: 40.00 MG, INTRAVENOUS
     Route: 042
     Dates: start: 20070601
  4. VINCRISTINE [Suspect]
     Indication: MULTIPLE MYELOMA
     Dosage: 0.40 MG, INTRAVENOUS
     Route: 042
     Dates: start: 20070601
  5. THALIDOMIDE [Suspect]
     Indication: MULTIPLE MYELOMA
     Dosage: 100.00 MG, ORAL
     Route: 048
     Dates: start: 20070719, end: 20070904

REACTIONS (6)
  - CATHETER SEPSIS [None]
  - CEREBELLAR INFARCTION [None]
  - DYSPNOEA [None]
  - HYPOTENSION [None]
  - PNEUMONIA [None]
  - REVERSIBLE POSTERIOR LEUKOENCEPHALOPATHY SYNDROME [None]
